FAERS Safety Report 6406763-8 (Version None)
Quarter: 2009Q4

REPORT INFORMATION
  Report Type: 
  Country: None (occurrence: None)
  Receive Date: 20091020
  Receipt Date: 20091012
  Transmission Date: 20100525
  Serious: Yes (Hospitalization, Other)
  Sender: FDA-Public Use
  Company Number: US-JNJFOC-20091004570

PATIENT
  Sex: Female
  Weight: 65.32 kg

DRUGS (4)
  1. DURAGESIC-100 [Suspect]
     Indication: OSTEOARTHRITIS
     Dosage: 100 UG/HR+100 UG/HR+50 UG/HR PATCHES
     Route: 062
  2. OXYCODONE [Concomitant]
     Indication: PAIN
     Route: 048
  3. XANAX [Concomitant]
     Route: 048
  4. UNKNOWN MEDICATION [Concomitant]

REACTIONS (5)
  - DRUG DOSE OMISSION [None]
  - INAPPROPRIATE SCHEDULE OF DRUG ADMINISTRATION [None]
  - INTESTINAL PERFORATION [None]
  - SUPRAVENTRICULAR TACHYCARDIA [None]
  - WITHDRAWAL SYNDROME [None]
